FAERS Safety Report 9441544 (Version 1)
Quarter: 2013Q3

REPORT INFORMATION
  Report Type: Spontaneous
  Country: US (occurrence: US)
  Receive Date: 20130805
  Receipt Date: 20130805
  Transmission Date: 20140515
  Serious: Yes (Other)
  Sender: FDA-Public Use
  Company Number: US-TEVA-413865USA

PATIENT
  Age: 28 Year
  Sex: Female
  Weight: 74.46 kg

DRUGS (8)
  1. PARAGARD 380A [Suspect]
     Indication: CONTRACEPTION
     Route: 015
     Dates: start: 20130509
  2. EFFEXOR [Concomitant]
     Indication: DEPRESSION
  3. DEPAKOTE [Concomitant]
     Indication: ANXIETY
  4. DEPAKOTE [Concomitant]
     Indication: DEPRESSION
  5. HALDOL [Concomitant]
     Indication: ANXIETY
  6. HALDOL [Concomitant]
     Indication: DEPRESSION
  7. METHYLIN [Concomitant]
     Indication: ANXIETY
  8. METHYLIN [Concomitant]
     Indication: DEPRESSION

REACTIONS (1)
  - Device dislocation [Not Recovered/Not Resolved]
